FAERS Safety Report 4277843-0 (Version None)
Quarter: 2004Q1

REPORT INFORMATION
  Report Type: 
  Country: None (occurrence: None)
  Receive Date: 20040122
  Receipt Date: 20031007
  Transmission Date: 20041129
  Serious: Yes (Other)
  Sender: FDA-Public Use
  Company Number: STA-AE-03-029

PATIENT
  Age: 50 Year
  Sex: Male

DRUGS (2)
  1. HYDROCHLOROTHIAZDE TAB [Suspect]
     Indication: HYPERTENSION
     Dosage: 25 MG PER DAY, ORAL
     Route: 048
  2. FOSINOPRIL SODIUM [Suspect]
     Indication: HYPERTENSION
     Dosage: 20 MG PER DAY, ORAL
     Route: 048

REACTIONS (6)
  - BLOOD PRESSURE INCREASED [None]
  - CAROTID ARTERY ATHEROMA [None]
  - CAROTID ARTERY OCCLUSION [None]
  - PUPILLARY DISORDER [None]
  - RETINAL ARTERY OCCLUSION [None]
  - VISUAL ACUITY REDUCED [None]
